FAERS Safety Report 6127864-8 (Version None)
Quarter: 2009Q1

REPORT INFORMATION
  Report Type: 
  Country: None (occurrence: None)
  Receive Date: 20090320
  Receipt Date: 20090320
  Transmission Date: 20090719
  Serious: Yes (Death, Life-Threatening, Disabling)
  Sender: FDA-Public Use
  Company Number: None

PATIENT
  Age: 93 Year
  Sex: Female
  Weight: 54.4316 kg

DRUGS (6)
  1. EFFEXOR XR [Suspect]
     Dosage: 10 OR 11/07 UNTIL DEATH ON 9/14/08
  2. TRAZODONE HCL [Suspect]
     Dosage: 10 OR 11/07 - 8/08
     Dates: start: 20070101, end: 20080801
  3. WELLBUTRIN [Suspect]
     Dates: start: 20060101, end: 20070101
  4. DEPAKOTE [Suspect]
     Dosage: 3/08 UNTIL DEATH
     Dates: start: 20080301
  5. LORAZEPAM [Suspect]
  6. MORPHINE [Suspect]
     Dosage: 9/9/08 UNTIL DEATH
     Dates: start: 20080909

REACTIONS (8)
  - ABNORMAL BEHAVIOUR [None]
  - ANXIETY [None]
  - DEMENTIA [None]
  - FEAR [None]
  - HYPOACUSIS [None]
  - MENTAL DISORDER [None]
  - TARDIVE DYSKINESIA [None]
  - VISUAL IMPAIRMENT [None]
